FAERS Safety Report 26023727 (Version 1)
Quarter: 2025Q4

REPORT INFORMATION
  Report Type: Spontaneous
  Country: US (occurrence: US)
  Receive Date: 20251111
  Receipt Date: 20251111
  Transmission Date: 20260117
  Serious: No
  Sender: ELI LILLY AND COMPANY
  Company Number: US-ELI_LILLY_AND_COMPANY-US202508004973

PATIENT
  Age: 68 Year
  Sex: Female

DRUGS (28)
  1. ZEPBOUND [Suspect]
     Active Substance: TIRZEPATIDE
     Indication: Sleep apnoea syndrome
     Dosage: 2.5 MG, UNKNOWN
     Route: 058
     Dates: start: 202505
  2. ZEPBOUND [Suspect]
     Active Substance: TIRZEPATIDE
     Indication: Sleep apnoea syndrome
     Dosage: 2.5 MG, UNKNOWN
     Route: 058
     Dates: start: 202505
  3. ZEPBOUND [Suspect]
     Active Substance: TIRZEPATIDE
     Indication: Sleep apnoea syndrome
     Dosage: 2.5 MG, UNKNOWN
     Route: 058
     Dates: start: 202505
  4. ZEPBOUND [Suspect]
     Active Substance: TIRZEPATIDE
     Indication: Sleep apnoea syndrome
     Dosage: 2.5 MG, UNKNOWN
     Route: 058
     Dates: start: 202505
  5. ZEPBOUND [Suspect]
     Active Substance: TIRZEPATIDE
     Indication: Sleep apnoea syndrome
     Dosage: 5 MG, UNKNOWN
     Route: 058
     Dates: start: 202506
  6. ZEPBOUND [Suspect]
     Active Substance: TIRZEPATIDE
     Indication: Sleep apnoea syndrome
     Dosage: 5 MG, UNKNOWN
     Route: 058
     Dates: start: 202506
  7. ZEPBOUND [Suspect]
     Active Substance: TIRZEPATIDE
     Indication: Sleep apnoea syndrome
     Dosage: 5 MG, UNKNOWN
     Route: 058
     Dates: start: 202506
  8. ZEPBOUND [Suspect]
     Active Substance: TIRZEPATIDE
     Indication: Sleep apnoea syndrome
     Dosage: 5 MG, UNKNOWN
     Route: 058
     Dates: start: 202506
  9. ZEPBOUND [Suspect]
     Active Substance: TIRZEPATIDE
     Indication: Sleep apnoea syndrome
     Dosage: 7.5 MG, UNKNOWN
     Route: 058
     Dates: start: 202507
  10. ZEPBOUND [Suspect]
     Active Substance: TIRZEPATIDE
     Indication: Sleep apnoea syndrome
     Dosage: 7.5 MG, UNKNOWN
     Route: 058
     Dates: start: 202507
  11. ZEPBOUND [Suspect]
     Active Substance: TIRZEPATIDE
     Indication: Sleep apnoea syndrome
     Dosage: 7.5 MG, UNKNOWN
     Route: 058
     Dates: start: 202507
  12. ZEPBOUND [Suspect]
     Active Substance: TIRZEPATIDE
     Indication: Sleep apnoea syndrome
     Dosage: 7.5 MG, UNKNOWN
     Route: 058
     Dates: start: 202507
  13. ZEPBOUND [Suspect]
     Active Substance: TIRZEPATIDE
     Dosage: 7.5 MG, UNKNOWN
     Route: 065
  14. ZEPBOUND [Suspect]
     Active Substance: TIRZEPATIDE
     Dosage: 7.5 MG, UNKNOWN
     Route: 065
  15. ZEPBOUND [Suspect]
     Active Substance: TIRZEPATIDE
     Dosage: 7.5 MG, UNKNOWN
     Route: 065
  16. ZEPBOUND [Suspect]
     Active Substance: TIRZEPATIDE
     Dosage: 7.5 MG, UNKNOWN
     Route: 065
  17. ZEPBOUND [Suspect]
     Active Substance: TIRZEPATIDE
     Indication: Sleep apnoea syndrome
     Dosage: 10 MG, UNKNOWN
     Route: 058
     Dates: start: 202508
  18. ZEPBOUND [Suspect]
     Active Substance: TIRZEPATIDE
     Indication: Sleep apnoea syndrome
     Dosage: 10 MG, UNKNOWN
     Route: 058
     Dates: start: 202508
  19. ZEPBOUND [Suspect]
     Active Substance: TIRZEPATIDE
     Indication: Sleep apnoea syndrome
     Dosage: 10 MG, UNKNOWN
     Route: 058
     Dates: start: 202508
  20. ZEPBOUND [Suspect]
     Active Substance: TIRZEPATIDE
     Indication: Sleep apnoea syndrome
     Dosage: 10 MG, UNKNOWN
     Route: 058
     Dates: start: 202508
  21. ZEPBOUND [Suspect]
     Active Substance: TIRZEPATIDE
     Indication: Sleep apnoea syndrome
     Dosage: 12.5 MG, UNKNOWN
     Route: 058
     Dates: start: 202509
  22. ZEPBOUND [Suspect]
     Active Substance: TIRZEPATIDE
     Indication: Sleep apnoea syndrome
     Dosage: 12.5 MG, UNKNOWN
     Route: 058
     Dates: start: 202509
  23. ZEPBOUND [Suspect]
     Active Substance: TIRZEPATIDE
     Indication: Sleep apnoea syndrome
     Dosage: 12.5 MG, UNKNOWN
     Route: 058
     Dates: start: 202509
  24. ZEPBOUND [Suspect]
     Active Substance: TIRZEPATIDE
     Indication: Sleep apnoea syndrome
     Dosage: 12.5 MG, UNKNOWN
     Route: 058
     Dates: start: 202509
  25. ZEPBOUND [Suspect]
     Active Substance: TIRZEPATIDE
     Indication: Sleep apnoea syndrome
     Dosage: 15 MG, UNKNOWN
     Route: 058
     Dates: start: 202510
  26. ZEPBOUND [Suspect]
     Active Substance: TIRZEPATIDE
     Indication: Sleep apnoea syndrome
     Dosage: 15 MG, UNKNOWN
     Route: 058
     Dates: start: 202510
  27. ZEPBOUND [Suspect]
     Active Substance: TIRZEPATIDE
     Indication: Sleep apnoea syndrome
     Dosage: 15 MG, UNKNOWN
     Route: 058
     Dates: start: 202510
  28. ZEPBOUND [Suspect]
     Active Substance: TIRZEPATIDE
     Indication: Sleep apnoea syndrome
     Dosage: 15 MG, UNKNOWN
     Route: 058
     Dates: start: 202510

REACTIONS (3)
  - Product storage error [Unknown]
  - Feeling abnormal [Unknown]
  - Constipation [Recovering/Resolving]
